FAERS Safety Report 5002525-7 (Version None)
Quarter: 2006Q2

REPORT INFORMATION
  Report Type: 
  Country: None (occurrence: None)
  Receive Date: 20060510
  Receipt Date: 20060425
  Transmission Date: 20061013
  Serious: Yes (Disabling)
  Sender: FDA-Public Use
  Company Number: 33201

PATIENT
  Age: 70 Year
  Sex: Male

DRUGS (1)
  1. TRAVOPROST [Suspect]
     Indication: OCULAR HYPERTENSION
     Dosage: 1 GTT HS OPHT
     Route: 047
     Dates: start: 20051021, end: 20051024

REACTIONS (5)
  - CORNEAL GRAFT REJECTION [None]
  - EYE INFLAMMATION [None]
  - EYE PAIN [None]
  - VISION BLURRED [None]
  - VISUAL ACUITY REDUCED [None]
